FAERS Safety Report 11334753 (Version 1)
Quarter: 2015Q3

REPORT INFORMATION
  Report Type: Spontaneous
  Country: FR (occurrence: None)
  Receive Date: 20150731
  Receipt Date: 20150731
  Transmission Date: 20151125
  Serious: Yes (Other)
  Sender: FDA-Public Use
  Company Number: ADR-2015-01430

PATIENT
  Sex: Male

DRUGS (1)
  1. BACLOFEN INTRATHECAL (BACLOFEN) AMPOULE [Suspect]
     Active Substance: BACLOFEN

REACTIONS (2)
  - Skin disorder [None]
  - Device allergy [None]
